FAERS Safety Report 20647829 (Version 1)
Quarter: 2022Q1

REPORT INFORMATION
  Report Type: Spontaneous
  Country: US (occurrence: None)
  Receive Date: 20220328
  Receipt Date: 20220328
  Transmission Date: 20220423
  Serious: No
  Sender: FDA-Public Use
  Company Number: None

PATIENT
  Age: 58 Year
  Sex: Male

DRUGS (1)
  1. XELJANZ [Suspect]
     Active Substance: TOFACITINIB CITRATE
     Indication: Crohn^s disease
     Dosage: FREQUENCY : TWICE A DAY;?
     Route: 048
     Dates: start: 202110

REACTIONS (1)
  - Therapy non-responder [None]

NARRATIVE: CASE EVENT DATE: 20220201
